FAERS Safety Report 8816610 (Version 1)
Quarter: 2012Q4

REPORT INFORMATION
  Report Type: Spontaneous
  Country: US (occurrence: None)
  Receive Date: 20121001
  Receipt Date: 20121001
  Transmission Date: 20130627
  Serious: Yes (Hospitalization)
  Sender: FDA-Public Use
  Company Number: None

PATIENT
  Sex: Male

DRUGS (3)
  1. RIBAVIRIN [Suspect]
     Dates: start: 201205
  2. PEGINTRON [Concomitant]
  3. VICTRELIS [Concomitant]

REACTIONS (5)
  - Dizziness [None]
  - Nausea [None]
  - Unresponsive to stimuli [None]
  - Dehydration [None]
  - Ammonia increased [None]
